FAERS Safety Report 7984983-9 (Version None)
Quarter: 2011Q4

REPORT INFORMATION
  Report Type: 
  Country: None (occurrence: None)
  Receive Date: 20111216
  Receipt Date: 20111026
  Transmission Date: 20120403
  Serious: No
  Sender: FDA-Public Use
  Company Number: US-ALLERGAN-1114120US

PATIENT
  Age: 48 Year
  Sex: Female

DRUGS (4)
  1. SIMILASAN [Concomitant]
     Indication: DRY EYE
  2. AFCON [Concomitant]
     Indication: DRY EYE
  3. LATISSE [Suspect]
     Indication: DRY EYE
  4. LATISSE [Suspect]
     Indication: HYPOTRICHOSIS
     Dosage: UNK GTT
     Route: 061
     Dates: start: 20110801

REACTIONS (2)
  - TRICHORRHEXIS [None]
  - OFF LABEL USE [None]
